FAERS Safety Report 8840779 (Version 1)
Quarter: 2012Q4

REPORT INFORMATION
  Report Type: 
  Country: US (occurrence: US)
  Receive Date: 20121015
  Receipt Date: 20121015
  Transmission Date: 20130627
  Serious: No
  Sender: FDA-Public Use
  Company Number: US-ROCHE-GNE211888

PATIENT
  Sex: Male
  Weight: 84.9 kg

DRUGS (10)
  1. NUTROPIN [Suspect]
     Indication: GROWTH HORMONE DEFICIENCY
     Route: 065
     Dates: start: 200401, end: 200409
  2. NUTROPIN [Suspect]
     Indication: HYPOPITUITARISM
  3. ANDROGEL [Concomitant]
     Indication: ADRENAL INSUFFICIENCY
     Dosage: 5 g, qd
     Route: 065
  4. CORTEF [Concomitant]
     Indication: ADRENAL INSUFFICIENCY
     Dosage: 5 mg, qd
     Route: 065
  5. LIPITOR [Concomitant]
     Indication: PRODUCT USED FOR UNKNOWN INDICATION
     Dosage: 40 mg, qd
     Route: 065
  6. PINDOLOL [Concomitant]
     Indication: PRODUCT USED FOR UNKNOWN INDICATION
     Dosage: 10 mg, qd
     Route: 065
  7. L-THYROXINE [Concomitant]
     Indication: PRODUCT USED FOR UNKNOWN INDICATION
     Dosage: 88 ?g, qd
     Route: 065
  8. DDAVP [Concomitant]
     Indication: PRODUCT USED FOR UNKNOWN INDICATION
     Dosage: .4 mg, QHS
     Route: 065
  9. BABY ASPIRIN [Concomitant]
     Indication: PRODUCT USED FOR UNKNOWN INDICATION
     Dosage: UNK, qd
     Route: 065
  10. MULTIPLE VITAMIN [Concomitant]
     Indication: PRODUCT USED FOR UNKNOWN INDICATION
     Dosage: UNK, qd
     Route: 065

REACTIONS (1)
  - Weight increased [Recovered/Resolved]
